FAERS Safety Report 24252356 (Version 1)
Quarter: 2024Q3

REPORT INFORMATION
  Report Type: Spontaneous
  Country: CN (occurrence: CN)
  Receive Date: 20240827
  Receipt Date: 20240827
  Transmission Date: 20241016
  Serious: Yes (Hospitalization, Other)
  Sender: SANOFI AVENTIS
  Company Number: CN-SA-SAC20240822000462

PATIENT
  Age: 69 Year
  Sex: Male
  Weight: 59 kg

DRUGS (2)
  1. OXALIPLATIN [Suspect]
     Active Substance: OXALIPLATIN
     Indication: Chemotherapy
     Dosage: 200 MG, QD
     Route: 041
     Dates: start: 20240812, end: 20240812
  2. DEXTROSE [Concomitant]
     Active Substance: DEXTROSE\DEXTROSE MONOHYDRATE
     Indication: Rectal cancer
     Dosage: 500 ML, TOTAL
     Route: 041
     Dates: start: 20240812, end: 20240812

REACTIONS (6)
  - Chills [Recovering/Resolving]
  - Hyperpyrexia [Recovering/Resolving]
  - Nausea [Recovering/Resolving]
  - Dyspnoea [Recovering/Resolving]
  - Cytopenia [Recovering/Resolving]
  - Vomiting [Recovering/Resolving]

NARRATIVE: CASE EVENT DATE: 20240812
